FAERS Safety Report 15315356 (Version 2)
Quarter: 2018Q4

REPORT INFORMATION
  Report Type: Spontaneous
  Country: JP (occurrence: JP)
  Receive Date: 20180824
  Receipt Date: 20181112
  Transmission Date: 20190204
  Serious: Yes (Hospitalization)
  Sender: FDA-Public Use
  Company Number: JP-ACTELION-A-CH2017-164755

PATIENT
  Age: 69 Year
  Sex: Male

DRUGS (20)
  1. HEAVY MAGNESIUM OXIDE [Concomitant]
     Active Substance: MAGNESIUM OXIDE
  2. OPSUMIT [Suspect]
     Active Substance: MACITENTAN
     Indication: PULMONARY ARTERIAL HYPERTENSION
     Dosage: 10 MG, OD
     Route: 048
     Dates: start: 20171208, end: 20171210
  3. DILTIAZEM HYDROCHLORIDE. [Concomitant]
     Active Substance: DILTIAZEM HYDROCHLORIDE
  4. BISOPROLOL FUMARATE. [Concomitant]
     Active Substance: BISOPROLOL FUMARATE
  5. OXYGEN. [Concomitant]
     Active Substance: OXYGEN
  6. CRESTOR [Concomitant]
     Active Substance: ROSUVASTATIN CALCIUM
  7. FEBURIC [Concomitant]
     Active Substance: FEBUXOSTAT
  8. SPIRONOLACTONE. [Concomitant]
     Active Substance: SPIRONOLACTONE
  9. KAKKONTO [Concomitant]
     Active Substance: HERBALS
  10. PANTETHINE [Concomitant]
     Active Substance: PANTETHINE
  11. NEXIUM [Concomitant]
     Active Substance: ESOMEPRAZOLE MAGNESIUM
  12. ELIQUIS [Concomitant]
     Active Substance: APIXABAN
  13. CARVEDILOL. [Concomitant]
     Active Substance: CARVEDILOL
  14. ZOLPIDEM [Concomitant]
     Active Substance: ZOLPIDEM\ZOLPIDEM TARTRATE
  15. FERROUS CITRATE NA [Concomitant]
     Active Substance: SODIUM FERROUS CITRATE
  16. BISONO [Concomitant]
     Active Substance: BISOPROLOL
  17. FUROSEMIDE. [Concomitant]
     Active Substance: FUROSEMIDE
  18. SAMSCA [Concomitant]
     Active Substance: TOLVAPTAN
  19. AZOSEMIDE [Concomitant]
     Active Substance: AZOSEMIDE
  20. SENNOSIDE [Concomitant]
     Active Substance: SENNOSIDES

REACTIONS (12)
  - Malaise [Recovering/Resolving]
  - Nausea [Recovered/Resolved]
  - Anaemia [Recovering/Resolving]
  - Dehydration [Recovering/Resolving]
  - Eating disorder [Recovered/Resolved]
  - Renal impairment [Recovering/Resolving]
  - Decreased appetite [Recovered/Resolved]
  - Vomiting [Recovered/Resolved]
  - Dyspnoea [Recovering/Resolving]
  - Transfusion [Unknown]
  - Urine output decreased [Recovering/Resolving]
  - Melaena [Recovering/Resolving]

NARRATIVE: CASE EVENT DATE: 20171208
